FAERS Safety Report 23119149 (Version 2)
Quarter: 2023Q4

REPORT INFORMATION
  Report Type: Spontaneous
  Country: US (occurrence: US)
  Receive Date: 20231028
  Receipt Date: 20231127
  Transmission Date: 20240109
  Serious: No
  Sender: FDA-Public Use
  Company Number: US-TAKEDA-2023TUS103472

PATIENT
  Age: 50 Year
  Sex: Female
  Weight: 107 kg

DRUGS (1)
  1. VONVENDI [Suspect]
     Active Substance: VON WILLEBRAND FACTOR (RECOMBINANT)
     Indication: Prophylaxis
     Dosage: 2660 INTERNATIONAL UNIT, 1/WEEK
     Route: 042
     Dates: start: 202305

REACTIONS (3)
  - Syringe issue [Recovered/Resolved]
  - Device difficult to use [Unknown]
  - Product dose omission issue [Recovered/Resolved]

NARRATIVE: CASE EVENT DATE: 20231020
